FAERS Safety Report 25245485 (Version 1)
Quarter: 2025Q2

REPORT INFORMATION
  Report Type: Report from Study
  Country: CA (occurrence: CA)
  Receive Date: 20250428
  Receipt Date: 20250428
  Transmission Date: 20250716
  Serious: Yes (Other)
  Sender: CSL BEHRING
  Company Number: CA-BEH-2024183291

PATIENT
  Age: 70 Year
  Sex: Male
  Weight: 91 kg

DRUGS (15)
  1. HIZENTRA [Suspect]
     Active Substance: HUMAN IMMUNOGLOBULIN G
     Indication: Chronic inflammatory demyelinating polyradiculoneuropathy
     Dosage: 20 G, QW
     Route: 065
     Dates: start: 20241023
  2. HIZENTRA [Suspect]
     Active Substance: HUMAN IMMUNOGLOBULIN G
     Dosage: 18 G, QW
     Route: 065
     Dates: start: 20241023
  3. HIZENTRA [Suspect]
     Active Substance: HUMAN IMMUNOGLOBULIN G
     Dosage: 18 G, QW
     Route: 065
     Dates: start: 20241118
  4. HIZENTRA [Suspect]
     Active Substance: HUMAN IMMUNOGLOBULIN G
     Dosage: 22 G, QW
     Route: 058
     Dates: start: 20241023
  5. HIZENTRA [Suspect]
     Active Substance: HUMAN IMMUNOGLOBULIN G
     Route: 058
     Dates: start: 20241023
  6. VITAMINS [Concomitant]
     Active Substance: VITAMINS
  7. VITAMIN B12 [Concomitant]
     Active Substance: CYANOCOBALAMIN
  8. TAMSULOSIN [Concomitant]
     Active Substance: TAMSULOSIN
     Dosage: 0.4 MG, QD
  9. ROSUVASTATIN [Concomitant]
     Active Substance: ROSUVASTATIN
  10. AMITRIPTYLINE [Concomitant]
     Active Substance: AMITRIPTYLINE
     Dosage: 10 MG, TID
  11. PROPRANOLOL [Concomitant]
     Active Substance: PROPRANOLOL HYDROCHLORIDE
     Dosage: 20 MG, BID
  12. BENADRYL [Concomitant]
     Active Substance: DIPHENHYDRAMINE HYDROCHLORIDE
  13. TYLENOL [Concomitant]
     Active Substance: ACETAMINOPHEN
  14. NAPROXEN [Concomitant]
     Active Substance: NAPROXEN
  15. CYCLOBENZAPRINE [Concomitant]
     Active Substance: CYCLOBENZAPRINE

REACTIONS (35)
  - Polyneuropathy [Unknown]
  - Arrhythmia [Unknown]
  - Demyelinating polyneuropathy [Unknown]
  - Demyelination [Unknown]
  - Tremor [Unknown]
  - Fine motor skill dysfunction [Unknown]
  - Device difficult to use [Unknown]
  - Hand deformity [Unknown]
  - Loss of personal independence in daily activities [Unknown]
  - Fine motor skill dysfunction [Unknown]
  - Hypoaesthesia [Unknown]
  - Paraesthesia [Unknown]
  - Paraesthesia [Unknown]
  - Hypoaesthesia [Unknown]
  - Paraesthesia [Unknown]
  - Pain [Unknown]
  - Gait disturbance [Unknown]
  - Dizziness postural [Unknown]
  - Benign prostatic hyperplasia [Unknown]
  - Sensory loss [Unknown]
  - Body temperature decreased [Unknown]
  - Vibration test abnormal [Unknown]
  - Arthropathy [Unknown]
  - Hypertonia [Unknown]
  - Tremor [Unknown]
  - Bradykinesia [Unknown]
  - Gait disturbance [Unknown]
  - Motor dysfunction [Unknown]
  - Behaviour disorder [Unknown]
  - Asthenia [Unknown]
  - Resting tremor [Unknown]
  - Muscle rigidity [Unknown]
  - Parkinsonism [Unknown]
  - Migraine [Unknown]
  - Disturbance in attention [Unknown]
